FAERS Safety Report 22910914 (Version 2)
Quarter: 2023Q4

REPORT INFORMATION
  Report Type: Spontaneous
  Country: BR (occurrence: BR)
  Receive Date: 20230906
  Receipt Date: 20231011
  Transmission Date: 20240110
  Serious: Yes (Other)
  Sender: FDA-Public Use
  Company Number: BR-AMGEN-BRASP2023154392

PATIENT
  Age: 35 Year
  Sex: Male
  Weight: 60 kg

DRUGS (10)
  1. BLINCYTO [Suspect]
     Active Substance: BLINATUMOMAB
     Indication: B precursor type acute leukaemia
     Dosage: 10.37 MILLIGRAM
     Route: 065
     Dates: start: 20230719, end: 20230720
  2. BLINCYTO [Suspect]
     Active Substance: BLINATUMOMAB
     Dosage: 10.37 MILLIGRAM
     Route: 065
     Dates: start: 20230724, end: 202307
  3. BLINCYTO [Suspect]
     Active Substance: BLINATUMOMAB
     Dosage: 32.5 MILLIGRAM, DOSE INCREASED
     Route: 065
     Dates: start: 20230731, end: 20230802
  4. HYDROCORTISONE [Concomitant]
     Active Substance: HYDROCORTISONE
     Dosage: 50 MILLIGRAM
  5. Dipyron [Concomitant]
     Dosage: 500 MILLIGRAM
  6. POTASSIUM CHLORIDE [Concomitant]
     Active Substance: POTASSIUM CHLORIDE
     Dosage: 600 MILLIGRAM
  7. METOCLOPRAMIDE [Concomitant]
     Active Substance: METOCLOPRAMIDE
     Dosage: 10 MILLIGRAM
  8. INSULIN HUMAN [Concomitant]
     Active Substance: INSULIN HUMAN
  9. ACYCLOVIR [Concomitant]
     Active Substance: ACYCLOVIR
     Dosage: 400 MILLIGRAM
  10. DEXAMETHASONE [Concomitant]
     Active Substance: DEXAMETHASONE
     Dosage: 20 MILLIGRAM

REACTIONS (8)
  - Neurotoxicity [Recovered/Resolved]
  - Unresponsive to stimuli [Recovered/Resolved]
  - Apathy [Recovered/Resolved]
  - Communication disorder [Recovered/Resolved]
  - Confusional state [Recovered/Resolved]
  - Hypoacusis [Recovered/Resolved]
  - Asthenia [Recovered/Resolved]
  - Muscle spasms [Recovered/Resolved]

NARRATIVE: CASE EVENT DATE: 20230720
